FAERS Safety Report 7906042-3 (Version None)
Quarter: 2011Q4

REPORT INFORMATION
  Report Type: 
  Country: None (occurrence: None)
  Receive Date: 20111110
  Receipt Date: 20111110
  Transmission Date: 20120403
  Serious: Yes (Hospitalization, Other)
  Sender: FDA-Public Use
  Company Number: None

PATIENT
  Age: 14 Year
  Sex: Male
  Weight: 47.627 kg

DRUGS (2)
  1. STRATTERA [Suspect]
     Indication: ATTENTION DEFICIT/HYPERACTIVITY DISORDER
     Dosage: 60 MG.
     Route: 048
     Dates: start: 20090720, end: 20111108
  2. STRATTERA [Suspect]
     Indication: ANXIETY
     Dosage: 60 MG.
     Route: 048
     Dates: start: 20090720, end: 20111108

REACTIONS (7)
  - HYPERTENSION [None]
  - FALL [None]
  - CHEST DISCOMFORT [None]
  - EPISTAXIS [None]
  - HEADACHE [None]
  - DIZZINESS [None]
  - HEART RATE INCREASED [None]
